FAERS Safety Report 9332147 (Version 7)
Quarter: 2016Q2

REPORT INFORMATION
  Report Type: Report from Study
  Country: CA (occurrence: CA)
  Receive Date: 20130606
  Receipt Date: 20160516
  Transmission Date: 20160815
  Serious: Yes (Hospitalization)
  Sender: FDA-Public Use
  Company Number: CA-ROCHE-1233014

PATIENT
  Age: 55 Year
  Sex: Female
  Weight: 80 kg

DRUGS (14)
  1. GABAPENTIN. [Concomitant]
     Active Substance: GABAPENTIN
  2. ACTEMRA [Suspect]
     Active Substance: TOCILIZUMAB
     Dosage: SMALL DOSE ADJUSTMENTS THEREAFTER
     Route: 042
     Dates: start: 20131120
  3. ACTEMRA [Suspect]
     Active Substance: TOCILIZUMAB
     Route: 042
     Dates: start: 20130920
  4. PANTOPRAZOLE [Concomitant]
     Active Substance: PANTOPRAZOLE SODIUM
  5. ADVAIR HFA [Concomitant]
     Active Substance: FLUTICASONE PROPIONATE\SALMETEROL XINAFOATE
  6. ACETAMINOPHEN. [Concomitant]
     Active Substance: ACETAMINOPHEN
  7. ACTEMRA [Suspect]
     Active Substance: TOCILIZUMAB
     Route: 042
     Dates: start: 20130724
  8. ACTEMRA [Suspect]
     Active Substance: TOCILIZUMAB
     Indication: RHEUMATOID ARTHRITIS
     Route: 042
     Dates: start: 20130227
  9. TRIAZIDE [Concomitant]
  10. SPIRIVA [Concomitant]
     Active Substance: TIOTROPIUM BROMIDE MONOHYDRATE
  11. SALBUTAMOL [Concomitant]
     Active Substance: ALBUTEROL
  12. ACTEMRA [Suspect]
     Active Substance: TOCILIZUMAB
     Route: 042
     Dates: start: 20130823
  13. ACTEMRA [Suspect]
     Active Substance: TOCILIZUMAB
     Dosage: SMALL DOSE ADJUSTMENTS THEREAFTER
     Route: 042
     Dates: start: 20140620
  14. ATASOL (PARACETAMOL) [Concomitant]

REACTIONS (13)
  - Pain in jaw [Recovered/Resolved]
  - Nasopharyngitis [Unknown]
  - Tonsillitis [Unknown]
  - Headache [Recovered/Resolved]
  - Arthralgia [Unknown]
  - Ear pain [Recovered/Resolved]
  - Drug ineffective [Unknown]
  - Lung infection [Recovered/Resolved]
  - Pericarditis [Unknown]
  - Pain in extremity [Not Recovered/Not Resolved]
  - Chest pain [Recovered/Resolved]
  - Hepatic enzyme increased [Unknown]
  - Musculoskeletal stiffness [Recovered/Resolved]

NARRATIVE: CASE EVENT DATE: 201303
